FAERS Safety Report 15525839 (Version 1)
Quarter: 2018Q4

REPORT INFORMATION
  Report Type: Spontaneous
  Country: US (occurrence: US)
  Receive Date: 20181018
  Receipt Date: 20181018
  Transmission Date: 20190205
  Serious: Yes (Hospitalization)
  Sender: FDA-Public Use
  Company Number: US-LPDUSPRD-20181898

PATIENT
  Sex: Male

DRUGS (3)
  1. VENOFER [Suspect]
     Active Substance: IRON SUCROSE
     Dosage: 50 MG, 1 IN 1 WK
     Route: 040
     Dates: start: 20180727
  2. EPOGEN [Concomitant]
     Active Substance: ERYTHROPOIETIN
     Dosage: 4800 IU,3 IN 1 WK
     Route: 040
     Dates: start: 20180808, end: 20180921
  3. VELPHORO [Suspect]
     Active Substance: FERRIC OXYHYDROXIDE
     Dosage: 2000 MG (500 MG,4 IN 1 D)
     Route: 048
     Dates: start: 20180801, end: 201808

REACTIONS (2)
  - Faeces discoloured [Recovered/Resolved]
  - Fall [Recovered/Resolved]

NARRATIVE: CASE EVENT DATE: 20180731
